FAERS Safety Report 15396211 (Version 1)
Quarter: 2018Q3

REPORT INFORMATION
  Report Type: Spontaneous
  Country: US (occurrence: US)
  Receive Date: 20180911
  Receipt Date: 20180911
  Transmission Date: 20181010
  Serious: No
  Sender: FDA-Public Use
  Company Number: None

PATIENT
  Age: 71 Year
  Sex: Male

DRUGS (2)
  1. PEMBROLIZUMAB. [Suspect]
     Active Substance: PEMBROLIZUMAB
     Indication: ACUTE MYELOID LEUKAEMIA
     Route: 042
     Dates: start: 20180822
  2. AZACITIDINE. [Suspect]
     Active Substance: AZACITIDINE
     Indication: ACUTE MYELOID LEUKAEMIA
     Dosage: ?          OTHER FREQUENCY:EVERY 28 DAYS;?
     Route: 058
     Dates: start: 20180815

REACTIONS (11)
  - Pyrexia [None]
  - Posture abnormal [None]
  - Liver function test increased [None]
  - Meningitis aseptic [None]
  - Rash maculo-papular [None]
  - Neck pain [None]
  - Asthenia [None]
  - Dysstasia [None]
  - CSF protein increased [None]
  - Chronic sinusitis [None]
  - Decreased appetite [None]

NARRATIVE: CASE EVENT DATE: 20180507
